FAERS Safety Report 6366799-2 (Version None)
Quarter: 2009Q3

REPORT INFORMATION
  Report Type: 
  Country: None (occurrence: None)
  Receive Date: 20090921
  Receipt Date: 20090911
  Transmission Date: 20100115
  Serious: Yes (Death, Other)
  Sender: FDA-Public Use
  Company Number: GR-WATSON-2009-07463

PATIENT
  Age: 29 Year
  Sex: Male

DRUGS (1)
  1. ANDRODERM [Suspect]
     Indication: DRUG USE FOR UNKNOWN INDICATION
     Dosage: UNK
     Route: 065

REACTIONS (3)
  - DRUG ABUSE [None]
  - HAEMORRHAGE [None]
  - LUNG CYST [None]
